FAERS Safety Report 17200419 (Version 2)
Quarter: 2019Q4

REPORT INFORMATION
  Report Type: Spontaneous
  Country: US (occurrence: US)
  Receive Date: 20191226
  Receipt Date: 20191231
  Transmission Date: 20200122
  Serious: No
  Sender: FDA-Public Use
  Company Number: US-ALEMBIC PHARMACUETICALS LIMITED-2019SCAL001002

PATIENT

DRUGS (4)
  1. CLONAZEPAM. [Suspect]
     Active Substance: CLONAZEPAM
     Indication: PRODUCT USED FOR UNKNOWN INDICATION
     Dosage: 2 MILLIGRAM, OD
     Dates: start: 201907
  2. TEMAZEPAM CAPSULES [Suspect]
     Active Substance: TEMAZEPAM
     Dosage: 2 CAPSULES AT NIGHT
  3. CLONAZEPAM. [Suspect]
     Active Substance: CLONAZEPAM
     Dosage: 1 MILLIGRAM, AT NIGHT
     Dates: start: 201909
  4. TEMAZEPAM CAPSULES [Suspect]
     Active Substance: TEMAZEPAM
     Indication: PRODUCT USED FOR UNKNOWN INDICATION
     Dosage: 15 MILLIGRAM, OD NIGHT
     Dates: start: 201904

REACTIONS (9)
  - Fatigue [Unknown]
  - Intentional product use issue [Unknown]
  - Insomnia [Unknown]
  - Depressed mood [Unknown]
  - Hypersomnia [Unknown]
  - Emotional distress [Unknown]
  - Asthenia [Unknown]
  - Drug ineffective [Unknown]
  - Laziness [Unknown]

NARRATIVE: CASE EVENT DATE: 2019
